FAERS Safety Report 15758500 (Version 1)
Quarter: 2018Q4

REPORT INFORMATION
  Report Type: Spontaneous
  Country: AU (occurrence: AU)
  Receive Date: 20181225
  Receipt Date: 20181225
  Transmission Date: 20190205
  Serious: Yes (Life-Threatening, Other)
  Sender: FDA-Public Use
  Company Number: AU-ELI_LILLY_AND_COMPANY-AU201812009628

PATIENT
  Sex: Female

DRUGS (1)
  1. BARICITINIB 2MG [Suspect]
     Active Substance: BARICITINIB
     Indication: RHEUMATOID ARTHRITIS
     Dosage: 2 MG, UNK
     Route: 065
     Dates: start: 20180925

REACTIONS (2)
  - Pulmonary embolism [Unknown]
  - Loss of consciousness [Unknown]
